FAERS Safety Report 6473562-0 (Version None)
Quarter: 2009Q4

REPORT INFORMATION
  Report Type: 
  Country: None (occurrence: None)
  Receive Date: 20091204
  Receipt Date: 20090126
  Transmission Date: 20100525
  Serious: Yes (Other)
  Sender: FDA-Public Use
  Company Number: US-ELI_LILLY_AND_COMPANY-US200901000369

PATIENT
  Age: 78 Year
  Sex: Female
  Weight: 67.12 kg

DRUGS (3)
  1. EVISTA [Suspect]
     Indication: OSTEOPOROSIS
     Dosage: 60 MG, UNKNOWN
     Route: 065
     Dates: start: 20040101
  2. LOPRESSOR [Concomitant]
     Dosage: UNK, UNKNOWN
     Route: 065
  3. IRON [Concomitant]
     Dosage: UNK, UNKNOWN
     Route: 065

REACTIONS (2)
  - COELIAC DISEASE [None]
  - SPINAL LAMINECTOMY [None]
